FAERS Safety Report 14558596 (Version 1)
Quarter: 2018Q1

REPORT INFORMATION
  Report Type: Spontaneous
  Country: US (occurrence: US)
  Receive Date: 20180221
  Receipt Date: 20180221
  Transmission Date: 20180509
  Serious: No
  Sender: FDA-Public Use
  Company Number: US-LANNETT COMPANY, INC.-US-2017LAN001224

PATIENT

DRUGS (1)
  1. LANORINAL [Suspect]
     Active Substance: ASPIRIN\BUTALBITAL\CAFFEINE
     Indication: MIGRAINE
     Dosage: 2 DF, QD
     Route: 048

REACTIONS (6)
  - Hypotension [Recovered/Resolved]
  - Feeling abnormal [Recovered/Resolved]
  - Dizziness [Recovered/Resolved]
  - Head discomfort [Recovered/Resolved]
  - Gait disturbance [Recovered/Resolved]
  - Product taste abnormal [Recovered/Resolved]

NARRATIVE: CASE EVENT DATE: 201711
